FAERS Safety Report 10648167 (Version 1)
Quarter: 2014Q4

REPORT INFORMATION
  Report Type: Spontaneous
  Country: CH (occurrence: CH)
  Receive Date: 20141212
  Receipt Date: 20141212
  Transmission Date: 20150529
  Serious: Yes (Hospitalization)
  Sender: FDA-Public Use
  Company Number: CH-TEVA-527072ISR

PATIENT
  Age: 60 Year
  Sex: Female
  Weight: 60 kg

DRUGS (4)
  1. FOLIC ACID. [Concomitant]
     Active Substance: FOLIC ACID
     Route: 048
     Dates: start: 201406
  2. IBUPROFEN. [Interacting]
     Active Substance: IBUPROFEN
     Indication: PAIN MANAGEMENT
     Dosage: 1200 MILLIGRAM DAILY; LONG TERM RESERVE MEDICATION, PRIOR TO HOSPITALIZATION TAKEN REGULARLY
     Route: 048
     Dates: end: 20141112
  3. METHOTREXATE [Interacting]
     Active Substance: METHOTREXATE
     Route: 058
     Dates: start: 201406, end: 201409
  4. METHOTREXATE [Suspect]
     Active Substance: METHOTREXATE
     Indication: RHEUMATIC FEVER
     Route: 058
     Dates: start: 20140925, end: 201411

REACTIONS (9)
  - Leukopenia [Recovered/Resolved]
  - Agranulocytosis [Recovered/Resolved]
  - Mouth ulceration [Unknown]
  - Weight decreased [Unknown]
  - Gastrointestinal disorder [Unknown]
  - Drug interaction [Recovered/Resolved]
  - Synovitis [Unknown]
  - Pain [Unknown]
  - Inflammation [Unknown]

NARRATIVE: CASE EVENT DATE: 201409
